FAERS Safety Report 17530047 (Version 1)
Quarter: 2020Q1

REPORT INFORMATION
  Report Type: Spontaneous
  Country: NL (occurrence: NL)
  Receive Date: 20200312
  Receipt Date: 20200312
  Transmission Date: 20200409
  Serious: Yes (Other)
  Sender: FDA-Public Use
  Company Number: NL-TEVA-2020-NL-1198187

PATIENT
  Age: 76 Year
  Sex: Male
  Weight: 62 kg

DRUGS (1)
  1. AMOXICILLINE CAPSULES MYLAN [Suspect]
     Active Substance: AMOXICILLIN
     Indication: PNEUMONIA
     Dosage: CAPSULES 500MG, 1 WEEK (COURSE) 3 TIMES A DAY 1 CAPSULE, 1 CAPSULE OF 500MG
     Route: 065
     Dates: start: 20200124, end: 20200126

REACTIONS (2)
  - Hallucination [Recovering/Resolving]
  - Pruritus [Recovering/Resolving]

NARRATIVE: CASE EVENT DATE: 20200124
